FAERS Safety Report 21267541 (Version 1)
Quarter: 2022Q3

REPORT INFORMATION
  Report Type: Spontaneous
  Country: IT (occurrence: IT)
  Receive Date: 20220829
  Receipt Date: 20220829
  Transmission Date: 20221027
  Serious: Yes (Disabling, Other)
  Sender: FDA-Public Use
  Company Number: IT-AstraZeneca-2022A264999

PATIENT
  Age: 55 Year
  Sex: Male

DRUGS (16)
  1. TICAGRELOR [Interacting]
     Active Substance: TICAGRELOR
     Indication: Angiocardiogram
     Dosage: UNK
     Route: 048
  2. TICAGRELOR [Interacting]
     Active Substance: TICAGRELOR
     Indication: Stent placement
  3. TICAGRELOR [Interacting]
     Active Substance: TICAGRELOR
     Indication: Acute myocardial infarction
  4. TICAGRELOR [Interacting]
     Active Substance: TICAGRELOR
     Indication: Infarction
  5. ATORVASTATIN [Interacting]
     Active Substance: ATORVASTATIN
     Indication: Stent placement
     Dosage: 80 MILLIGRAM, QD
     Route: 065
  6. ATORVASTATIN [Interacting]
     Active Substance: ATORVASTATIN
     Indication: Angiocardiogram
     Dosage: 10 MILLIGRAM, QD
     Route: 065
  7. ATORVASTATIN [Interacting]
     Active Substance: ATORVASTATIN
     Indication: Acute myocardial infarction
  8. ATORVASTATIN [Interacting]
     Active Substance: ATORVASTATIN
     Indication: Infarction
  9. DARUNAVIR\RITONAVIR [Suspect]
     Active Substance: DARUNAVIR\RITONAVIR
     Indication: HIV infection
     Dosage: UNK
     Route: 065
  10. EMTRICITABINE\TENOFOVIR DISOPROXIL [Concomitant]
     Active Substance: EMTRICITABINE\TENOFOVIR DISOPROXIL
     Indication: HIV infection
     Dosage: 10 MILLIGRAM
     Route: 065
  11. ASPIRIN [Interacting]
     Active Substance: ASPIRIN
     Indication: Angiocardiogram
     Dosage: 100 MILLIGRAM, QD
     Route: 065
  12. ASPIRIN [Interacting]
     Active Substance: ASPIRIN
     Indication: Stent placement
  13. ASPIRIN [Interacting]
     Active Substance: ASPIRIN
     Indication: Acute myocardial infarction
  14. ASPIRIN [Interacting]
     Active Substance: ASPIRIN
     Indication: Infarction
  15. ETRAVIRINE [Concomitant]
     Active Substance: ETRAVIRINE
     Indication: HIV infection
     Dosage: UNK
     Route: 065
  16. EMTRICITABINE\TENOFOVIR ALAFENAMIDE FUMARATE [Concomitant]
     Active Substance: EMTRICITABINE\TENOFOVIR ALAFENAMIDE FUMARATE
     Indication: HIV infection
     Dosage: UNK
     Route: 065

REACTIONS (8)
  - Pain in extremity [Recovering/Resolving]
  - Gait disturbance [Recovering/Resolving]
  - Pain [Recovered/Resolved]
  - Paraesthesia [Recovering/Resolving]
  - Blood creatine phosphokinase abnormal [Recovered/Resolved]
  - Blood creatine phosphokinase increased [Recovering/Resolving]
  - Off label use [Not Recovered/Not Resolved]
  - Drug interaction [Not Recovered/Not Resolved]
